FAERS Safety Report 6437934-2 (Version None)
Quarter: 2009Q4

REPORT INFORMATION
  Report Type: 
  Country: None (occurrence: None)
  Receive Date: 20091112
  Receipt Date: 20081118
  Transmission Date: 20100525
  Serious: No
  Sender: FDA-Public Use
  Company Number: US-ASTRAZENECA-2009UW17203

PATIENT
  Age: 2 Year
  Sex: Male
  Weight: 11.3 kg

DRUGS (1)
  1. PRILOSEC OTC [Suspect]
     Dosage: 1 TABLET, 1 ONLY FOR 1 DAY
     Route: 048
     Dates: start: 20081118, end: 20081118

REACTIONS (1)
  - ACCIDENTAL DRUG INTAKE BY CHILD [None]
